FAERS Safety Report 6501781-3 (Version None)
Quarter: 2009Q4

REPORT INFORMATION
  Report Type: 
  Country: None (occurrence: None)
  Receive Date: 20091216
  Receipt Date: 20091216
  Transmission Date: 20100525
  Serious: Yes (Other)
  Sender: FDA-Public Use
  Company Number: US-PFIZER INC-2009286956

PATIENT
  Sex: Female

DRUGS (4)
  1. LYRICA [Suspect]
     Indication: FIBROMYALGIA
     Dosage: 75 MG, 1X/DAY
  2. LYRICA [Suspect]
     Indication: PAIN
  3. SIMVASTATIN [Concomitant]
     Dosage: UNK
  4. NASONEX [Concomitant]
     Dosage: UNK

REACTIONS (2)
  - ACTIVITIES OF DAILY LIVING IMPAIRED [None]
  - MENTAL IMPAIRMENT [None]
